FAERS Safety Report 8084277-X (Version None)
Quarter: 2012Q1

REPORT INFORMATION
  Report Type: 
  Country: None (occurrence: None)
  Receive Date: 20120128
  Receipt Date: 20110307
  Transmission Date: 20120608
  Serious: No
  Sender: FDA-Public Use
  Company Number: US-ABBOTT-11P-163-0709713-00

PATIENT
  Age: 36 Year
  Sex: Female

DRUGS (5)
  1. BACTRIM DS [Concomitant]
     Indication: PRODUCT USED FOR UNKNOWN INDICATION
     Dosage: ONE TWICE A DAY FOR 14 DAYS
     Dates: start: 20110211, end: 20110225
  2. IBUPROFEN (ADVIL) [Concomitant]
     Indication: PAIN
     Dosage: OTC AS NEEDED
  3. HUMIRA [Suspect]
     Indication: CROHN'S DISEASE
     Route: 058
     Dates: start: 20110211, end: 20110211
  4. HUMIRA [Suspect]
     Dosage: HAS NOT HAD FIRST MAINTENANCE YET
     Route: 058
     Dates: start: 20110226, end: 20110226
  5. ZANTAC [Concomitant]
     Indication: GASTROOESOPHAGEAL REFLUX DISEASE
     Dosage: DAILY

REACTIONS (1)
  - HYPOAESTHESIA [None]
